FAERS Safety Report 24865514 (Version 1)
Quarter: 2025Q1

REPORT INFORMATION
  Report Type: Spontaneous
  Country: IT (occurrence: IT)
  Receive Date: 20250121
  Receipt Date: 20250121
  Transmission Date: 20250408
  Serious: Yes (Other)
  Sender: ROCHE
  Company Number: IT-ROCHE-10000181796

PATIENT
  Age: 45 Year
  Sex: Male

DRUGS (2)
  1. ALECTINIB [Suspect]
     Active Substance: ALECTINIB
     Indication: Lung adenocarcinoma
     Route: 065
  2. LORLATINIB [Concomitant]
     Active Substance: LORLATINIB

REACTIONS (3)
  - Disease progression [Not Recovered/Not Resolved]
  - Paraneoplastic pemphigus [Not Recovered/Not Resolved]
  - Metastases to central nervous system [Not Recovered/Not Resolved]
